FAERS Safety Report 6045157-4 (Version None)
Quarter: 2009Q1

REPORT INFORMATION
  Report Type: 
  Country: None (occurrence: None)
  Receive Date: 20090121
  Receipt Date: 20090109
  Transmission Date: 20090719
  Serious: Yes (Life-Threatening)
  Sender: FDA-Public Use
  Company Number: JP-ASTRAZENECA-2008SE05699

PATIENT
  Sex: Male
  Weight: 58 kg

DRUGS (14)
  1. BLOPRESS TABLETS 8 [Suspect]
     Indication: HYPERTENSION
     Route: 048
     Dates: start: 20050610
  2. BLOPRESS TABLETS 8 [Suspect]
     Route: 048
     Dates: end: 20081128
  3. CEFAMEZIN ALFA [Suspect]
     Route: 042
     Dates: start: 20081125, end: 20081128
  4. AMLODIPINE [Concomitant]
     Indication: HYPERTENSION
     Route: 048
     Dates: start: 20051011
  5. PREDOPA [Concomitant]
     Route: 042
     Dates: start: 20081125, end: 20081125
  6. PENTAZOCINE LACTATE [Concomitant]
     Route: 042
     Dates: start: 20081125, end: 20081125
  7. AUZEI [Concomitant]
     Route: 042
     Dates: start: 20081125, end: 20081126
  8. CEFLONIC [Concomitant]
     Route: 042
     Dates: start: 20081127, end: 20081201
  9. UROKINASE [Concomitant]
     Route: 042
     Dates: start: 20081127, end: 20081128
  10. HEPARIN [Concomitant]
     Route: 042
     Dates: start: 20081127, end: 20081128
  11. VOLTAREN SUPPO [Concomitant]
     Route: 054
     Dates: start: 20081125, end: 20081125
  12. SEVOFLURANE [Concomitant]
     Indication: ANAESTHESIA PROCEDURE
     Route: 055
     Dates: start: 20081125, end: 20081125
  13. ULTIVA [Concomitant]
     Indication: ANAESTHESIA PROCEDURE
     Route: 042
     Dates: start: 20081125, end: 20081125
  14. THIOPENTAL SODIUM [Concomitant]
     Indication: ANAESTHESIA PROCEDURE
     Route: 042
     Dates: start: 20081125, end: 20081125

REACTIONS (5)
  - ATELECTASIS [None]
  - DYSPNOEA EXERTIONAL [None]
  - HYPOXIA [None]
  - INTERSTITIAL LUNG DISEASE [None]
  - PLEURAL EFFUSION [None]
